FAERS Safety Report 7445107-X (Version None)
Quarter: 2011Q2

REPORT INFORMATION
  Report Type: 
  Country: None (occurrence: None)
  Receive Date: 20110427
  Receipt Date: 20110427
  Transmission Date: 20111010
  Serious: Yes (Other)
  Sender: FDA-Public Use
  Company Number: None

PATIENT
  Age: 41 Year
  Sex: Male

DRUGS (2)
  1. RIBOFLAVIN [Suspect]
     Indication: CORNEAL DISORDER
     Dosage: 30 MIN1GTT Q 2 MINS FOR
     Route: 047
     Dates: start: 20110216, end: 20110216
  2. RIBOFLAVIN [Suspect]
     Indication: CORNEAL DISORDER
     Dosage: 1GTT Q 2 MINS FOR 30 MIN
     Route: 047
     Dates: start: 20110216, end: 20110216

REACTIONS (1)
  - POSTOPERATIVE WOUND COMPLICATION [None]
